FAERS Safety Report 4677739-6 (Version None)
Quarter: 2005Q2

REPORT INFORMATION
  Report Type: 
  Country: None (occurrence: None)
  Receive Date: 20050527
  Receipt Date: 20050517
  Transmission Date: 20051028
  Serious: Yes (Life-Threatening)
  Sender: FDA-Public Use
  Company Number: 11196

PATIENT
  Age: 58 Year
  Sex: Female

DRUGS (6)
  1. LEUCOVORIN [Suspect]
     Indication: COLON CANCER
     Dosage: 75 MG
     Route: 048
     Dates: start: 20040816, end: 20040913
  2. TEGAFUR URACIL [Suspect]
     Indication: COLON CANCER
     Dosage: 500 MG
     Route: 048
     Dates: start: 20040816, end: 20040913
  3. PREDNISONE [Concomitant]
  4. ROXATIDINE ACETATE HCL [Concomitant]
  5. CALCITRIOL [Concomitant]
  6. URSODEOXYCHOLIC ACID [Concomitant]

REACTIONS (2)
  - AUTOIMMUNE HEPATITIS [None]
  - CONDITION AGGRAVATED [None]
